FAERS Safety Report 18405219 (Version 2)
Quarter: 2021Q2

REPORT INFORMATION
  Report Type: Spontaneous
  Country: CA (occurrence: CA)
  Receive Date: 20201020
  Receipt Date: 20210615
  Transmission Date: 20210717
  Serious: Yes (Other)
  Sender: FDA-Public Use
  Company Number: CA-SAMSUNG BIOEPIS-SB-2020-31864

PATIENT
  Age: 51 Year
  Sex: Female
  Weight: 75 kg

DRUGS (3)
  1. REMICADE [Concomitant]
     Active Substance: INFLIXIMAB
     Indication: CROHN^S DISEASE
     Dosage: POWDER FOR SOLUTION INTRAVENOUS
     Route: 042
  2. INFLIXIMAB [Suspect]
     Active Substance: INFLIXIMAB
     Indication: CROHN^S DISEASE
     Route: 042
  3. MESALAZINE [Concomitant]
     Active Substance: MESALAMINE
     Indication: PRODUCT USED FOR UNKNOWN INDICATION
     Route: 065

REACTIONS (21)
  - Administration site bruise [Unknown]
  - Inappropriate schedule of product administration [Unknown]
  - Arthralgia [Unknown]
  - Condition aggravated [Unknown]
  - Headache [Unknown]
  - Nausea [Unknown]
  - Oral herpes [Unknown]
  - Anal fissure [Unknown]
  - Asthenia [Unknown]
  - Product use issue [Not Recovered/Not Resolved]
  - Poor venous access [Unknown]
  - Drug level above therapeutic [Unknown]
  - Fatigue [Unknown]
  - Vulvovaginal injury [Unknown]
  - Infusion site haemorrhage [Unknown]
  - Intentional product use issue [Unknown]
  - Depressed mood [Unknown]
  - Infusion site pain [Unknown]
  - Pain [Unknown]
  - Treatment failure [Unknown]
  - Off label use [Unknown]
